FAERS Safety Report 24616786 (Version 1)
Quarter: 2024Q4

REPORT INFORMATION
  Report Type: Spontaneous
  Country: US (occurrence: US)
  Receive Date: 20241114
  Receipt Date: 20241114
  Transmission Date: 20250114
  Serious: No
  Sender: OTSUKA
  Company Number: US-OTSUKA-2024_000242

PATIENT
  Sex: Female
  Weight: 63.5 kg

DRUGS (2)
  1. NUEDEXTA [Suspect]
     Active Substance: DEXTROMETHORPHAN HYDROBROMIDE\QUINIDINE SULFATE
     Indication: Multiple sclerosis
     Dosage: 1 DF (20 MG-10 MG), BID
     Route: 065
  2. VUMERITY [Concomitant]
     Active Substance: DIROXIMEL FUMARATE
     Indication: Multiple sclerosis
     Dosage: UNK
     Route: 065

REACTIONS (1)
  - Drug effective for unapproved indication [Unknown]
